FAERS Safety Report 21098856 (Version 1)
Quarter: 2022Q3

REPORT INFORMATION
  Report Type: Spontaneous
  Country: JP (occurrence: JP)
  Receive Date: 20220719
  Receipt Date: 20220719
  Transmission Date: 20221026
  Serious: Yes (Death, Other)
  Sender: FDA-Public Use
  Company Number: JP-ASTELLAS-2022JP004710

PATIENT
  Age: 7 Decade
  Sex: Female

DRUGS (1)
  1. PADCEV [Suspect]
     Active Substance: ENFORTUMAB VEDOTIN-EJFV
     Indication: Transitional cell carcinoma
     Dosage: 1.25 MG/KG, ONCE WEEKLY, ADMINISTRATION FOR 3 CONSECUTIVE WEEKS AND INTERRUPTION FOR WEEK 4
     Route: 041
     Dates: start: 202202, end: 20220524

REACTIONS (4)
  - Anaemia [Unknown]
  - Taste disorder [Recovered/Resolved]
  - Alopecia [Unknown]
  - Malignant neoplasm progression [Fatal]

NARRATIVE: CASE EVENT DATE: 20220524
